FAERS Safety Report 14681741 (Version 10)
Quarter: 2021Q1

REPORT INFORMATION
  Report Type: Spontaneous
  Country: US (occurrence: US)
  Receive Date: 20180326
  Receipt Date: 20210119
  Transmission Date: 20210419
  Serious: No
  Sender: FDA-Public Use
  Company Number: US-VIFOR (INTERNATIONAL) INC.-VIT-2018-02705

PATIENT
  Age: 73 Year
  Sex: Female

DRUGS (24)
  1. CLEARLAX [Concomitant]
     Active Substance: POLYETHYLENE GLYCOL 3350
  2. LORATADINE. [Concomitant]
     Active Substance: LORATADINE
  3. MECLIZINE HCL [Concomitant]
     Active Substance: MECLIZINE HYDROCHLORIDE
  4. VELTASSA [Suspect]
     Active Substance: PATIROMER
     Indication: HYPERKALAEMIA
     Route: 048
     Dates: start: 20160129
  5. VELTASSA [Suspect]
     Active Substance: PATIROMER
     Route: 048
  6. VELTASSA [Suspect]
     Active Substance: PATIROMER
     Route: 048
  7. ALENDRONATE SODIUM. [Concomitant]
     Active Substance: ALENDRONATE SODIUM
  8. FLUDROCORTISONE ACETATE. [Concomitant]
     Active Substance: FLUDROCORTISONE ACETATE
  9. GLUCOSAMINE HCL [Concomitant]
     Active Substance: GLUCOSAMINE
  10. DOCUSATE CALCIUM. [Concomitant]
     Active Substance: DOCUSATE CALCIUM
  11. FLAXSEED [Concomitant]
     Active Substance: FLAX SEED
  12. METAMUCIL [Concomitant]
     Active Substance: PLANTAGO SEED
  13. ALLERGY RELIEF [Concomitant]
  14. MAGNESIUM CITRATE. [Concomitant]
     Active Substance: MAGNESIUM CITRATE
  15. LOSARTAN POTASSIUM. [Concomitant]
     Active Substance: LOSARTAN POTASSIUM
  16. AZITHROMYCIN ANHYDROUS. [Concomitant]
     Active Substance: AZITHROMYCIN ANHYDROUS
  17. FUROSEMIDE. [Concomitant]
     Active Substance: FUROSEMIDE
  18. MULTIPLE VITAMINS [Concomitant]
     Active Substance: VITAMINS
  19. ACETAMINOPHEN. [Concomitant]
     Active Substance: ACETAMINOPHEN
  20. VITAMIN B COMPLEX [Concomitant]
     Active Substance: CYANOCOBALAMIN\DEXPANTHENOL\NIACINAMIDE\PYRIDOXINE HYDROCHLORIDE\RIBOFLAVIN 5^-PHOSPHATE SODIUM\THIAMINE HYDROCHLORIDE\VITAMIN B COMPLEX
  21. VITAMIN D3 [Concomitant]
     Active Substance: CHOLECALCIFEROL
  22. RANITIDINE HCL [Concomitant]
     Active Substance: RANITIDINE HYDROCHLORIDE
  23. AMOXICILLIN. [Concomitant]
     Active Substance: AMOXICILLIN
  24. LINZESS [Concomitant]
     Active Substance: LINACLOTIDE

REACTIONS (11)
  - Cough [Unknown]
  - Constipation [Not Recovered/Not Resolved]
  - Rash pruritic [Unknown]
  - Sinusitis [Not Recovered/Not Resolved]
  - Rash erythematous [Unknown]
  - Inappropriate schedule of product administration [Unknown]
  - Erythema [Not Recovered/Not Resolved]
  - Gastrooesophageal reflux disease [Unknown]
  - Tremor [Unknown]
  - Skin swelling [Not Recovered/Not Resolved]
  - Pruritus [Not Recovered/Not Resolved]

NARRATIVE: CASE EVENT DATE: 201801
